FAERS Safety Report 9271543 (Version 2)
Quarter: 2013Q4

REPORT INFORMATION
  Report Type: Report from Study
  Country: US (occurrence: US)
  Receive Date: 20130506
  Receipt Date: 20131028
  Transmission Date: 20140711
  Serious: Yes (Hospitalization)
  Sender: FDA-Public Use
  Company Number: US-JNJFOC-20130500182

PATIENT
  Age: 36 Year
  Sex: Female

DRUGS (16)
  1. REMICADE [Suspect]
     Indication: COLITIS ULCERATIVE
     Route: 042
  2. REMICADE [Suspect]
     Indication: COLITIS ULCERATIVE
     Route: 042
  3. REMICADE [Suspect]
     Indication: COLITIS ULCERATIVE
     Route: 042
  4. REMICADE [Suspect]
     Indication: COLITIS ULCERATIVE
     Route: 042
     Dates: start: 20120830
  5. BUDESONIDE [Concomitant]
     Route: 065
  6. HYDROCORTISONE [Concomitant]
     Route: 065
  7. IMURAN [Concomitant]
     Route: 065
  8. CALCIUM [Concomitant]
     Route: 065
  9. IRON [Concomitant]
     Route: 065
  10. ZINC [Concomitant]
     Route: 065
  11. VITAMIN C [Concomitant]
     Route: 065
  12. VITAMIN D [Concomitant]
     Route: 065
  13. L-GLUTAMINE [Concomitant]
     Route: 065
  14. FISH OIL [Concomitant]
     Route: 065
  15. VALERIAN ROOT [Concomitant]
     Route: 065
  16. ALLOPURINOL [Concomitant]
     Route: 065

REACTIONS (3)
  - Malaise [Recovering/Resolving]
  - Temporomandibular joint syndrome [Recovering/Resolving]
  - Drug ineffective [Recovering/Resolving]
